FAERS Safety Report 18311477 (Version 5)
Quarter: 2021Q3

REPORT INFORMATION
  Report Type: Report from Study
  Country: CN (occurrence: CN)
  Receive Date: 20200925
  Receipt Date: 20210728
  Transmission Date: 20211014
  Serious: Yes (Other)
  Sender: FDA-Public Use
  Company Number: CN-ROCHE-2681670

PATIENT
  Age: 61 Year
  Sex: Male
  Weight: 69 kg

DRUGS (14)
  1. FOLIC ACID. [Concomitant]
     Active Substance: FOLIC ACID
     Dates: start: 20200624
  2. COMPOUND DEXAMETHASONE ACETATE [Concomitant]
     Indication: RASH
     Route: 062
     Dates: start: 20200710
  3. BRUCEA JAVANICA [Concomitant]
  4. LOSARTAN. [Concomitant]
     Active Substance: LOSARTAN
     Indication: NEPHROGENIC ANAEMIA
     Dates: start: 202009, end: 202009
  5. CYCLOPHOSPHAMIDE. [Concomitant]
     Active Substance: CYCLOPHOSPHAMIDE
  6. ATEZOLIZUMAB. [Suspect]
     Active Substance: ATEZOLIZUMAB
     Indication: NON-SMALL CELL LUNG CANCER STAGE IV
     Dosage: DATE OF MOST RECENT DOSE OF ATEZOLIZUMAB PRIOR TO THE ONSET OF RENAL FUNCTION IMPAIRED: 03/SEP/2020
     Route: 042
     Dates: start: 20200903
  7. CANDESARTAN CILEXETIL. [Concomitant]
     Active Substance: CANDESARTAN CILEXETIL
     Indication: HYPERTENSION
     Dates: start: 20181119
  8. DEXAMETHASONE ACETATE [Concomitant]
     Active Substance: DEXAMETHASONE ACETATE
     Indication: HYPERSENSITIVITY
     Route: 048
     Dates: start: 20200902, end: 20200902
  9. NIU HUANG JIE DU PIAN [Concomitant]
     Active Substance: HERBALS
     Indication: GINGIVAL PAIN
     Route: 048
     Dates: start: 20200828, end: 20200830
  10. BEVACIZUMAB. [Suspect]
     Active Substance: BEVACIZUMAB
     Indication: NON-SMALL CELL LUNG CANCER STAGE IV
     Dosage: DATE OF MOST RECENT DOSE (1065 MG) OF BEVACIZUMAB PRIOR TO THE ONSET OF RENAL FUNCTION IMPAIRED: 03/
     Route: 042
     Dates: start: 20200702
  11. SHENG XUE BAO [Concomitant]
     Indication: ANAEMIA
  12. CARBOPLATIN. [Suspect]
     Active Substance: CARBOPLATIN
     Indication: NON-SMALL CELL LUNG CANCER STAGE IV
     Dosage: DATE OF MOST RECENT DOSE OF CARBOPLATIN PRIOR TO THE ONSET OF RENAL FUNCTION IMPAIRED: 03/SEP/2020?L
     Route: 042
     Dates: start: 20200702
  13. PEMETREXED. [Suspect]
     Active Substance: PEMETREXED
     Indication: NON-SMALL CELL LUNG CANCER STAGE IV
     Dosage: DATE OF MOST RECENT DOSE OF PEMETREXED PRIOR TO THE ONSET OF RENAL FUNCTION IMPAIRED: 03/SEP/2020?LA
     Route: 042
     Dates: start: 20200702
  14. NIU HUANG JIE DU PIAN [Concomitant]
     Active Substance: HERBALS
     Indication: SWELLING

REACTIONS (1)
  - Renal impairment [Not Recovered/Not Resolved]

NARRATIVE: CASE EVENT DATE: 20200918
